FAERS Safety Report 13533548 (Version 2)
Quarter: 2018Q2

REPORT INFORMATION
  Report Type: Report from Study
  Country: CN (occurrence: CN)
  Receive Date: 20170510
  Receipt Date: 20180523
  Transmission Date: 20180711
  Serious: Yes (Hospitalization, Other)
  Sender: FDA-Public Use
  Company Number: PHHY2016CN074065

PATIENT
  Age: 53 Year
  Sex: Male
  Weight: 57 kg

DRUGS (94)
  1. MYFORTIC [Suspect]
     Active Substance: MYCOPHENOLATE SODIUM
     Indication: RENAL TRANSPLANT
     Dosage: 2160 MG, QD
     Route: 065
     Dates: start: 20160423, end: 20160423
  2. MYFORTIC [Suspect]
     Active Substance: MYCOPHENOLATE SODIUM
     Indication: IMMUNOSUPPRESSANT DRUG THERAPY
     Dosage: 1440 MG, QD
     Route: 065
     Dates: start: 20160424, end: 20160428
  3. MYFORTIC [Suspect]
     Active Substance: MYCOPHENOLATE SODIUM
     Dosage: 720 MG, QD
     Route: 065
     Dates: start: 20160504, end: 20160607
  4. BASILIXIMAB [Suspect]
     Active Substance: BASILIXIMAB
     Indication: RENAL TRANSPLANT
     Dosage: 20 MG, QD
     Route: 065
     Dates: start: 20160422, end: 20160422
  5. PREDNISONE. [Suspect]
     Active Substance: PREDNISONE
     Dosage: 100 MG, QD
     Route: 065
     Dates: start: 20160426, end: 20160426
  6. PREDNISONE. [Suspect]
     Active Substance: PREDNISONE
     Dosage: 10 MG, QD
     Route: 065
     Dates: start: 20160808, end: 20160911
  7. METHYLPREDNISOLONE. [Suspect]
     Active Substance: METHYLPREDNISOLONE
     Dosage: 500 MG, QD
     Route: 065
     Dates: start: 20160423, end: 20160423
  8. METHYLPREDNISOLONE. [Suspect]
     Active Substance: METHYLPREDNISOLONE
     Dosage: 300 MG, QD
     Route: 065
     Dates: start: 20160428, end: 20160429
  9. RAPAMYCIN [Suspect]
     Active Substance: SIROLIMUS
     Indication: IMMUNOSUPPRESSANT DRUG THERAPY
     Dosage: 2 MG, QD
     Route: 065
     Dates: start: 20160502, end: 20160504
  10. POTASSIUM CHLORIDE. [Concomitant]
     Active Substance: POTASSIUM CHLORIDE
     Dosage: 8 G, QD
     Route: 042
     Dates: start: 20160422, end: 20160422
  11. SODIUM BICARBONATE. [Concomitant]
     Active Substance: SODIUM BICARBONATE
     Dosage: 50 G, BID
     Route: 042
     Dates: start: 20160430, end: 20160430
  12. NIFEDIPIN [Concomitant]
     Active Substance: NIFEDIPINE
     Indication: HYPERTENSION
     Dosage: 10 MG, QD
     Route: 048
     Dates: start: 20160424, end: 20160424
  13. INSULIN [Concomitant]
     Active Substance: INSULIN NOS
     Dosage: 4 IU, QD
     Route: 042
     Dates: start: 20160423, end: 20160503
  14. INSULIN [Concomitant]
     Active Substance: INSULIN NOS
     Dosage: 4 IU, QD
     Route: 042
     Dates: start: 20160422, end: 20160422
  15. RECOMBINANT HUMAN ERYTHROPOIETIN [Concomitant]
     Active Substance: ERYTHROPOIETIN
     Indication: ANAEMIA
     Dosage: 10000 IU, QD, IVHYP
     Route: 042
     Dates: start: 20160511, end: 20160511
  16. FUROSEMIDE. [Concomitant]
     Active Substance: FUROSEMIDE
     Dosage: 40 MG, BID
     Route: 048
     Dates: start: 20160520, end: 20160521
  17. METHYLPREDNISOLONE. [Suspect]
     Active Substance: METHYLPREDNISOLONE
     Dosage: 500 MG, QD
     Route: 065
     Dates: start: 20160427, end: 20160427
  18. ENEMA (SODIUM PHOSPHATE, DIBASIC\SODIUM PHOSPHATE, MONOBASIC) [Concomitant]
     Active Substance: SODIUM PHOSPHATE, DIBASIC\SODIUM PHOSPHATE, MONOBASIC
     Indication: CONSTIPATION
     Dosage: 40 ML, QD
     Route: 061
     Dates: start: 20160502, end: 20160502
  19. CALCINATE//CALCIUM GLUCONATE [Concomitant]
     Dosage: 3 G, QD
     Route: 042
     Dates: start: 20160430, end: 20160430
  20. INSULIN [Concomitant]
     Active Substance: INSULIN NOS
     Dosage: 4 IU, QD
     Route: 042
     Dates: start: 20160423, end: 20160426
  21. RECOMBINANT HUMAN ERYTHROPOIETIN [Concomitant]
     Active Substance: ERYTHROPOIETIN
     Dosage: 10000 IU, QD, IVHYP
     Route: 042
     Dates: start: 20160526, end: 20160526
  22. FUROSEMIDE. [Concomitant]
     Active Substance: FUROSEMIDE
     Dosage: 40 MG, QD
     Route: 048
     Dates: start: 20160424, end: 20160424
  23. TACROLIMUS. [Suspect]
     Active Substance: TACROLIMUS
     Dosage: 8 MG, QD
     Route: 065
     Dates: start: 20160520, end: 20160524
  24. PREDNISONE. [Suspect]
     Active Substance: PREDNISONE
     Indication: IMMUNOSUPPRESSANT DRUG THERAPY
     Dosage: 120 MG, QD
     Route: 065
     Dates: start: 20160425, end: 20160425
  25. PREDNISONE. [Suspect]
     Active Substance: PREDNISONE
     Dosage: 80 MG, QD
     Route: 065
     Dates: start: 20160427, end: 20160427
  26. ASPIRIN ENTERIC COATED K.P. [Concomitant]
     Active Substance: ASPIRIN
     Dosage: 100 MG, QD
     Route: 048
     Dates: start: 20160503, end: 20160503
  27. DIAZEPAM. [Concomitant]
     Active Substance: DIAZEPAM
     Dosage: 10 MG, QD
     Route: 030
     Dates: start: 20160504, end: 20160504
  28. CALCITRIOL. [Concomitant]
     Active Substance: CALCITRIOL
     Indication: PRODUCT USED FOR UNKNOWN INDICATION
     Dosage: 0.25 UG, QD
     Route: 048
     Dates: start: 20160504, end: 20160504
  29. POTASSIUM CHLORIDE. [Concomitant]
     Active Substance: POTASSIUM CHLORIDE
     Dosage: 3 G, QD
     Route: 042
     Dates: start: 20160426, end: 20160426
  30. CALCINATE//CALCIUM GLUCONATE [Concomitant]
     Dosage: 2 G, QD
     Route: 042
     Dates: start: 20160426, end: 20160426
  31. MOXIFLOXACIN HYDROCHLORIDE. [Concomitant]
     Active Substance: MOXIFLOXACIN HYDROCHLORIDE
     Indication: PRODUCT USED FOR UNKNOWN INDICATION
     Dosage: 0.4 G, QD
     Route: 048
     Dates: start: 20160502, end: 20160513
  32. MICAFUNGIN SODIUM [Concomitant]
     Active Substance: MICAFUNGIN SODIUM
     Indication: PRODUCT USED FOR UNKNOWN INDICATION
     Dosage: 100 MG, QD
     Route: 042
     Dates: start: 20160423, end: 20160428
  33. MYFORTIC [Suspect]
     Active Substance: MYCOPHENOLATE SODIUM
     Dosage: 1080 MG, QD
     Route: 065
     Dates: start: 20160429, end: 20160503
  34. TACROLIMUS. [Suspect]
     Active Substance: TACROLIMUS
     Indication: IMMUNOSUPPRESSANT DRUG THERAPY
     Dosage: 6 MG, QD
     Route: 065
     Dates: start: 20160425, end: 20160427
  35. TACROLIMUS. [Suspect]
     Active Substance: TACROLIMUS
     Dosage: 4 MG, QD
     Route: 065
     Dates: start: 20160601, end: 20160614
  36. METHYLPREDNISOLONE. [Suspect]
     Active Substance: METHYLPREDNISOLONE
     Indication: IMMUNOSUPPRESSANT DRUG THERAPY
     Dosage: 1000 MG, QD
     Route: 065
     Dates: start: 20160422, end: 20160422
  37. METHYLPREDNISOLONE. [Suspect]
     Active Substance: METHYLPREDNISOLONE
     Dosage: 200 MG, QD
     Route: 065
     Dates: start: 20160430, end: 20160430
  38. RAPAMYCIN [Suspect]
     Active Substance: SIROLIMUS
     Dosage: 1 MG, QD
     Route: 065
     Dates: start: 20160505, end: 20160527
  39. OMEPRAZOLE. [Concomitant]
     Active Substance: OMEPRAZOLE
     Indication: PROPHYLAXIS
     Dosage: 20 MG, QD
     Route: 048
     Dates: start: 20160506, end: 20160527
  40. POTASSIUM CHLORIDE. [Concomitant]
     Active Substance: POTASSIUM CHLORIDE
     Dosage: 5 G, QD
     Route: 042
     Dates: start: 20160425, end: 20160425
  41. CALCINATE//CALCIUM GLUCONATE [Concomitant]
     Dosage: 2 G, QD
     Dates: start: 20160504, end: 20160504
  42. OXYBUPROCAINE HYDROCHLORIDE [Concomitant]
     Active Substance: BENOXINATE HYDROCHLORIDE
     Indication: ANALGESIC THERAPY
     Dosage: 30 MG, QD
     Route: 042
     Dates: start: 20160422, end: 20160422
  43. LIDOCAINE HYDROCHLORIDE. [Concomitant]
     Active Substance: LIDOCAINE HYDROCHLORIDE
     Indication: ANAESTHESIA
     Dosage: 0.2 G, QD
     Route: 042
     Dates: start: 20160429, end: 20160429
  44. INSULIN [Concomitant]
     Active Substance: INSULIN NOS
     Dosage: 2 IU, QD
     Route: 042
     Dates: start: 20160423, end: 20160428
  45. LANSOPRAZOLE. [Concomitant]
     Active Substance: LANSOPRAZOLE
     Dosage: 30 MG, QD
     Route: 042
     Dates: start: 20160423, end: 20160501
  46. LANSOPRAZOLE. [Concomitant]
     Active Substance: LANSOPRAZOLE
     Dosage: 30 MG, QD
     Route: 042
     Dates: start: 20160513, end: 20160513
  47. FUROSEMIDE. [Concomitant]
     Active Substance: FUROSEMIDE
     Dosage: 40 MG, QD
     Route: 048
     Dates: start: 20160501, end: 20160501
  48. POTASSIUM CITRATE. [Concomitant]
     Active Substance: POTASSIUM CITRATE
     Indication: PRODUCT USED FOR UNKNOWN INDICATION
     Dosage: 4 G, BID
     Route: 048
     Dates: start: 20160501, end: 20160501
  49. MYFORTIC [Suspect]
     Active Substance: MYCOPHENOLATE SODIUM
     Dosage: 1080 MG, QD
     Route: 065
     Dates: start: 20160608
  50. TACROLIMUS. [Suspect]
     Active Substance: TACROLIMUS
     Dosage: 10 MG, QD
     Route: 065
     Dates: start: 20160429, end: 20160501
  51. PREDNISONE. [Suspect]
     Active Substance: PREDNISONE
     Dosage: 60 MG, QD
     Route: 065
     Dates: start: 20160428, end: 20160429
  52. PREDNISONE. [Suspect]
     Active Substance: PREDNISONE
     Dosage: 40 MG, QD
     Route: 065
     Dates: start: 20160430, end: 20160430
  53. PREDNISONE ACETATE [Concomitant]
     Active Substance: PREDNISONE ACETATE
     Indication: IMMUNOSUPPRESSANT DRUG THERAPY
     Dosage: 20 MG, QD
     Route: 065
     Dates: start: 20160424
  54. POTASSIUM CHLORIDE. [Concomitant]
     Active Substance: POTASSIUM CHLORIDE
     Dosage: 5 G, QD
     Route: 042
     Dates: start: 20160423, end: 20160423
  55. CALCINATE//CALCIUM GLUCONATE [Concomitant]
     Dosage: 2 G, QD
     Route: 042
     Dates: start: 20160425, end: 20160425
  56. SODIUM BICARBONATE. [Concomitant]
     Active Substance: SODIUM BICARBONATE
     Indication: ACID BASE BALANCE ABNORMAL
     Dosage: 25 G, QD
     Route: 042
     Dates: start: 20160422, end: 20160422
  57. NICARDIPINE HYDROCHLORIDE. [Concomitant]
     Active Substance: NICARDIPINE HYDROCHLORIDE
     Indication: HYPERTENSION
     Dosage: 20 MG, QD
     Route: 042
     Dates: start: 20160422, end: 20160422
  58. INSULIN [Concomitant]
     Active Substance: INSULIN NOS
     Indication: CENTRAL NERVOUS SYSTEM STIMULATION
     Dosage: 400 IU, QD
     Route: 042
     Dates: start: 20160422, end: 20160422
  59. FUROSEMIDE. [Concomitant]
     Active Substance: FUROSEMIDE
     Indication: POLYURIA
     Dosage: 20 MG, BID
     Route: 048
     Dates: start: 20160511, end: 20160527
  60. FUROSEMIDE. [Concomitant]
     Active Substance: FUROSEMIDE
     Dosage: 40 MG, QD
     Route: 048
     Dates: start: 20160426, end: 20160426
  61. FUROSEMIDE. [Concomitant]
     Active Substance: FUROSEMIDE
     Dosage: 40 MG, BID
     Route: 048
     Dates: start: 20160430, end: 20160519
  62. SODIUM BICARBONATE. [Concomitant]
     Active Substance: SODIUM BICARBONATE
     Indication: ACID BASE BALANCE ABNORMAL
     Dosage: 1 G, TID
     Route: 048
     Dates: start: 20160506, end: 20160511
  63. PREDNISONE. [Suspect]
     Active Substance: PREDNISONE
     Dosage: 20 MG, QD
     Route: 065
     Dates: start: 20160501, end: 20160614
  64. DIAZEPAM. [Concomitant]
     Active Substance: DIAZEPAM
     Indication: EPILEPSY
     Dosage: 10 MG, QD
     Route: 030
     Dates: start: 20160423, end: 20160423
  65. DIAZEPAM. [Concomitant]
     Active Substance: DIAZEPAM
     Dosage: 10 MG, QD
     Route: 030
     Dates: start: 20160430, end: 20160430
  66. ENEMA (SODIUM PHOSPHATE, DIBASIC\SODIUM PHOSPHATE, MONOBASIC) [Concomitant]
     Active Substance: SODIUM PHOSPHATE, DIBASIC\SODIUM PHOSPHATE, MONOBASIC
     Dosage: 80 ML, QD
     Route: 061
     Dates: start: 20160422, end: 20160422
  67. POTASSIUM CHLORIDE. [Concomitant]
     Active Substance: POTASSIUM CHLORIDE
     Indication: PRODUCT USED FOR UNKNOWN INDICATION
     Dosage: 2 G, QD
     Route: 042
     Dates: start: 20160424, end: 20160424
  68. POTASSIUM CHLORIDE. [Concomitant]
     Active Substance: POTASSIUM CHLORIDE
     Dosage: 4 G, QD
     Route: 042
     Dates: start: 20160425, end: 20160425
  69. CALCINATE//CALCIUM GLUCONATE [Concomitant]
     Indication: PRODUCT USED FOR UNKNOWN INDICATION
     Dosage: 8 G, QD
     Route: 042
     Dates: start: 20160422, end: 20160422
  70. NIFEDIPINE. [Concomitant]
     Active Substance: NIFEDIPINE
     Dosage: 30 MG, BID
     Route: 065
     Dates: start: 20160425, end: 20160523
  71. BASILIXIMAB [Suspect]
     Active Substance: BASILIXIMAB
     Indication: IMMUNOSUPPRESSANT DRUG THERAPY
     Dosage: 20 MG, QD
     Route: 065
     Dates: start: 20160426, end: 20160426
  72. TACROLIMUS. [Suspect]
     Active Substance: TACROLIMUS
     Dosage: 6 MG, QD
     Route: 065
     Dates: start: 20160502, end: 20160519
  73. TACROLIMUS. [Suspect]
     Active Substance: TACROLIMUS
     Dosage: 6 MG, QD
     Route: 065
     Dates: start: 20160525, end: 20160527
  74. PREDNISONE. [Suspect]
     Active Substance: PREDNISONE
     Dosage: 15 MG, QD
     Route: 065
     Dates: start: 20160615, end: 20160807
  75. PREDNISONE. [Suspect]
     Active Substance: PREDNISONE
     Dosage: 30 MG, QD
     Route: 065
     Dates: start: 20160912, end: 20160927
  76. ASPIRIN ENTERIC COATED K.P. [Concomitant]
     Active Substance: ASPIRIN
     Indication: PRODUCT USED FOR UNKNOWN INDICATION
     Dosage: 100 MG, QD
     Route: 042
     Dates: start: 20160504, end: 20160527
  77. CALCITRIOL. [Concomitant]
     Active Substance: CALCITRIOL
     Dosage: 0.25 UG, QD
     Route: 048
     Dates: start: 20160505, end: 20160527
  78. CALCINATE//CALCIUM GLUCONATE [Concomitant]
     Dosage: 2 G, QD
     Route: 042
     Dates: start: 20160423, end: 20160423
  79. NIFEDIPIN [Concomitant]
     Active Substance: NIFEDIPINE
     Dosage: 5 MG, QD
     Route: 042
     Dates: start: 20160501, end: 20160501
  80. MOXIFLOXACIN HYDROCHLORIDE. [Concomitant]
     Active Substance: MOXIFLOXACIN HYDROCHLORIDE
     Dosage: 0.4 G, QD
     Route: 048
     Dates: start: 20160524, end: 20160525
  81. FUROSEMIDE. [Concomitant]
     Active Substance: FUROSEMIDE
     Indication: POLYURIA
     Dosage: 20 MG, QD
     Route: 048
     Dates: start: 20160422, end: 20160422
  82. FUROSEMIDE. [Concomitant]
     Active Substance: FUROSEMIDE
     Dosage: 20 MG, QD
     Route: 048
     Dates: start: 20160426, end: 20160426
  83. FUROSEMIDE. [Concomitant]
     Active Substance: FUROSEMIDE
     Dosage: 40 MG, BID
     Route: 048
     Dates: start: 20160430, end: 20160430
  84. NIFEDIPINE. [Concomitant]
     Active Substance: NIFEDIPINE
     Indication: HYPERTENSION
     Dosage: 30 MG, QD
     Route: 048
     Dates: start: 20160424, end: 20160424
  85. NIFEDIPINE. [Concomitant]
     Active Substance: NIFEDIPINE
     Dosage: 30 MG, QD
     Route: 048
     Dates: start: 20160524, end: 20160527
  86. TACROLIMUS. [Suspect]
     Active Substance: TACROLIMUS
     Dosage: 8 MG, QD
     Route: 065
     Dates: start: 20160428, end: 20160428
  87. PREDNISONE. [Suspect]
     Active Substance: PREDNISONE
     Dosage: 10 MG, QD
     Route: 065
     Dates: start: 20160928
  88. ENEMA (SODIUM PHOSPHATE, DIBASIC\SODIUM PHOSPHATE, MONOBASIC) [Concomitant]
     Active Substance: SODIUM PHOSPHATE, DIBASIC\SODIUM PHOSPHATE, MONOBASIC
     Dosage: 80 ML, QD
     Dates: start: 20160503, end: 20160503
  89. SODIUM BICARBONATE. [Concomitant]
     Active Substance: SODIUM BICARBONATE
     Indication: PRODUCT USED FOR UNKNOWN INDICATION
     Dosage: 0.5 G, TID
     Route: 049
     Dates: start: 20160423, end: 20160428
  90. AMBROXOL HYDROCHLORIDE [Concomitant]
     Active Substance: AMBROXOL HYDROCHLORIDE
     Indication: PRODUCTIVE COUGH
     Dosage: 30 MG, BID
     Route: 042
     Dates: start: 20160423, end: 20160428
  91. MOXIFLOXACIN HYDROCHLORIDE. [Concomitant]
     Active Substance: MOXIFLOXACIN HYDROCHLORIDE
     Dosage: 0.4 G, QD
     Route: 048
     Dates: start: 20160523, end: 20160523
  92. LANSOPRAZOLE. [Concomitant]
     Active Substance: LANSOPRAZOLE
     Indication: PROPHYLAXIS
     Dosage: 30 MG, QD
     Route: 042
     Dates: start: 20160422, end: 20160422
  93. LEVOTHYROXINE SODIUM. [Concomitant]
     Active Substance: LEVOTHYROXINE SODIUM
     Indication: HYPOTHYROIDISM
     Dosage: 50 UG, QD
     Route: 048
     Dates: start: 20160521, end: 20160527
  94. FUROSEMIDE. [Concomitant]
     Active Substance: FUROSEMIDE
     Dosage: 40 MG, QD
     Route: 048
     Dates: start: 20160425, end: 20160425

REACTIONS (13)
  - Blood albumin decreased [Unknown]
  - Haemoglobin decreased [Unknown]
  - Blood glucose increased [Unknown]
  - White blood cell count increased [Unknown]
  - Blood creatinine increased [Recovered/Resolved]
  - Protein urine present [Unknown]
  - Low density lipoprotein increased [Unknown]
  - Lymphocyte count decreased [Unknown]
  - Blood urea increased [Unknown]
  - Blood triglycerides increased [Unknown]
  - Blood cholesterol increased [Unknown]
  - Neutrophil count increased [Unknown]
  - Overdose [Recovering/Resolving]

NARRATIVE: CASE EVENT DATE: 20160423
